FAERS Safety Report 6432185-X (Version None)
Quarter: 2009Q4

REPORT INFORMATION
  Report Type: 
  Country: None (occurrence: None)
  Receive Date: 20091109
  Receipt Date: 20091027
  Transmission Date: 20100525
  Serious: Yes (Hospitalization, Other)
  Sender: FDA-Public Use
  Company Number: DE-BAYER-200935144GPV

PATIENT
  Age: 17 Year
  Sex: Female

DRUGS (2)
  1. DROSPIRENONE AND ETHINYL ESTRADIOL [Suspect]
     Indication: ORAL CONTRACEPTION
     Dosage: CONVENT. + EXTENDED CYCLE
     Route: 048
     Dates: start: 20000101, end: 20070101
  2. DROSPIRENONE AND ETHINYL ESTRADIOL [Suspect]
     Route: 048
     Dates: start: 20090701, end: 20090927

REACTIONS (12)
  - ARRHYTHMIA [None]
  - DYSPNOEA [None]
  - ERYTHEMA [None]
  - FEELING HOT [None]
  - MIGRAINE WITH AURA [None]
  - OEDEMA PERIPHERAL [None]
  - PALPITATIONS [None]
  - PULMONARY MICROEMBOLI [None]
  - SYNCOPE [None]
  - VENOUS INSUFFICIENCY [None]
  - VENOUS THROMBOSIS LIMB [None]
  - VOMITING [None]
